FAERS Safety Report 16207891 (Version 4)
Quarter: 2020Q1

REPORT INFORMATION
  Report Type: Spontaneous
  Country: US (occurrence: US)
  Receive Date: 20190417
  Receipt Date: 20200310
  Transmission Date: 20200409
  Serious: Yes (Other)
  Sender: FDA-Public Use
  Company Number: US-PFIZER INC-2018346057

PATIENT
  Age: 50 Year
  Sex: Male
  Weight: 113 kg

DRUGS (17)
  1. LYRICA [Suspect]
     Active Substance: PREGABALIN
     Indication: NEUROPATHY PERIPHERAL
     Dosage: 200 MG, 2X/DAY
     Route: 048
  2. LYRICA [Suspect]
     Active Substance: PREGABALIN
     Indication: STIFF PERSON SYNDROME
  3. PREDNISONE. [Concomitant]
     Active Substance: PREDNISONE
     Indication: NEUROPATHY PERIPHERAL
     Dosage: 50 MG, UNK
  4. DILANTIN [Concomitant]
     Active Substance: PHENYTOIN
     Indication: NEURALGIA
  5. TOPAMAX [Concomitant]
     Active Substance: TOPIRAMATE
     Indication: NEUROPATHY PERIPHERAL
  6. TOPAMAX [Concomitant]
     Active Substance: TOPIRAMATE
     Indication: STIFF PERSON SYNDROME
  7. LYRICA [Suspect]
     Active Substance: PREGABALIN
     Indication: NEURALGIA
  8. PREDNISONE. [Concomitant]
     Active Substance: PREDNISONE
     Indication: STIFF PERSON SYNDROME
     Dosage: 60 MG, UNK
  9. PREDNISONE. [Concomitant]
     Active Substance: PREDNISONE
     Indication: NEURALGIA
     Dosage: 30 MG, UNK
  10. DILANTIN [Concomitant]
     Active Substance: PHENYTOIN
     Indication: STIFF PERSON SYNDROME
  11. TOPAMAX [Concomitant]
     Active Substance: TOPIRAMATE
     Indication: NEURALGIA
  12. PREDNISONE. [Concomitant]
     Active Substance: PREDNISONE
     Indication: GUILLAIN-BARRE SYNDROME
     Dosage: 10 MG, 1X/DAY
     Route: 048
  13. DILANTIN [Concomitant]
     Active Substance: PHENYTOIN
     Indication: GUILLAIN-BARRE SYNDROME
     Dosage: 100 MG, 1X/DAY
  14. TOPAMAX [Concomitant]
     Active Substance: TOPIRAMATE
     Indication: GUILLAIN-BARRE SYNDROME
     Dosage: 200 MG, 2X/DAY
     Route: 048
  15. PREDNISONE. [Concomitant]
     Active Substance: PREDNISONE
     Dosage: 10 MG, DAILY
  16. LYRICA [Suspect]
     Active Substance: PREGABALIN
     Indication: GUILLAIN-BARRE SYNDROME
  17. DILANTIN [Concomitant]
     Active Substance: PHENYTOIN
     Indication: NEUROPATHY PERIPHERAL

REACTIONS (4)
  - Visual impairment [Unknown]
  - Drug dependence [Unknown]
  - Cardiac failure [Unknown]
  - Personality disorder [Unknown]
